FAERS Safety Report 4676532-8 (Version None)
Quarter: 2005Q2

REPORT INFORMATION
  Report Type: 
  Country: None (occurrence: None)
  Receive Date: 20050525
  Receipt Date: 20050513
  Transmission Date: 20051028
  Serious: Yes (Other)
  Sender: FDA-Public Use
  Company Number: 2005VX000353

PATIENT
  Age: 60 Year
  Sex: Male

DRUGS (3)
  1. TASMAR [Suspect]
     Indication: PARKINSON'S DISEASE
     Dosage: 100 MG; 3 TIMES A DAY; UNKNOWN
  2. SINEMET [Concomitant]
  3. PERGOLIDE MESYLATE [Concomitant]

REACTIONS (5)
  - CONFUSIONAL STATE [None]
  - HEPATITIS [None]
  - HEPATOTOXICITY [None]
  - JAUNDICE [None]
  - RHABDOMYOLYSIS [None]
